FAERS Safety Report 17193555 (Version 1)
Quarter: 2019Q4

REPORT INFORMATION
  Report Type: Report from Study
  Country: None (occurrence: FR)
  Receive Date: 20191223
  Receipt Date: 20191223
  Transmission Date: 20200122
  Serious: Yes (Other)
  Sender: FDA-Public Use
  Company Number: FR-BAUSCH-BL-2019-066068

PATIENT
  Age: 38 Year
  Sex: Female

DRUGS (9)
  1. DEXAMETHASONE. [Suspect]
     Active Substance: DEXAMETHASONE
     Indication: HAEMOLYTIC ANAEMIA
     Dosage: MAINTENANCE REGIMEN
     Route: 048
  2. DEXAMETHASONE. [Suspect]
     Active Substance: DEXAMETHASONE
     Indication: OFF LABEL USE
     Dosage: REINTRODUCED 2 MONTHS LATER AT THE SAME DOSE
     Route: 048
  3. PREDNISONE. [Concomitant]
     Active Substance: PREDNISONE
     Dosage: CONCOMITANT THERAPY
     Route: 065
  4. HYDROXYCHLOROQUINE [Concomitant]
     Active Substance: HYDROXYCHLOROQUINE
     Indication: PRODUCT USED FOR UNKNOWN INDICATION
  5. BORTEZOMIB. [Suspect]
     Active Substance: BORTEZOMIB
     Indication: HAEMOLYTIC ANAEMIA
     Dosage: CYCLE4,BTZ/DEX WITHDRAWAL; ON DAYS 1, 4, 8 AND 11
     Route: 065
  6. BORTEZOMIB. [Suspect]
     Active Substance: BORTEZOMIB
     Dosage: REINTRODUCED 2 MONTHS LATER AT THE SAME DOSE
     Route: 065
  7. PREDNISONE. [Concomitant]
     Active Substance: PREDNISONE
     Indication: HAEMOLYTIC ANAEMIA
     Dosage: PRIOR THERAPY
  8. BORTEZOMIB. [Suspect]
     Active Substance: BORTEZOMIB
     Indication: OFF LABEL USE
     Dosage: MAINTENANCE REGIMEN
     Route: 065
  9. DEXAMETHASONE. [Concomitant]
     Active Substance: DEXAMETHASONE
     Indication: HAEMOLYTIC ANAEMIA
     Dosage: CYCLE4,BTZ/DEX WITHDRAWAL; WEEKLY; ON DAYS 1, 4, 8 AND 11, INDUCTION REGIMEN
     Route: 048

REACTIONS (2)
  - Off label use [Unknown]
  - Thrombocytopenia [Unknown]
